FAERS Safety Report 23930057 (Version 2)
Quarter: 2024Q2

REPORT INFORMATION
  Report Type: Spontaneous
  Country: PT (occurrence: PT)
  Receive Date: 20240601
  Receipt Date: 20240604
  Transmission Date: 20240716
  Serious: Yes (Life-Threatening, Hospitalization, Other)
  Sender: FDA-Public Use
  Company Number: PT-AUROBINDO-AUR-APL-2024-026087

PATIENT
  Age: 72 Year
  Sex: Male

DRUGS (2)
  1. CAPECITABINE [Suspect]
     Active Substance: CAPECITABINE
     Indication: Colon cancer stage IV
     Dosage: 14TH DAY OF THE 2ND CYCLE
     Route: 065
  2. CAPECITABINE [Suspect]
     Active Substance: CAPECITABINE
     Indication: Adjuvant therapy

REACTIONS (10)
  - Mucosal inflammation [Recovering/Resolving]
  - Rash erythematous [Recovering/Resolving]
  - Neutropenia [Recovering/Resolving]
  - Pneumonia acinetobacter [Recovering/Resolving]
  - Candida infection [Recovering/Resolving]
  - Diarrhoea [Recovering/Resolving]
  - Exfoliative rash [Recovering/Resolving]
  - Pneumonia serratia [Recovering/Resolving]
  - Febrile neutropenia [Unknown]
  - Toxicity to various agents [Unknown]
